FAERS Safety Report 5893218-2 (Version None)
Quarter: 2008Q3

REPORT INFORMATION
  Report Type: 
  Country: None (occurrence: None)
  Receive Date: 20080923
  Receipt Date: 20070810
  Transmission Date: 20090109
  Serious: No
  Sender: FDA-Public Use
  Company Number: US-ASTRAZENECA-2007UW19408

PATIENT
  Sex: Male

DRUGS (5)
  1. SEROQUEL [Suspect]
     Indication: MENTAL DISORDER
     Route: 048
  2. RITALIN [Concomitant]
  3. LEVOXYL [Concomitant]
  4. NEXIUM [Concomitant]
  5. LISINOPRIL [Concomitant]

REACTIONS (3)
  - EYE BURNS [None]
  - EYE DISORDER [None]
  - EYE IRRITATION [None]
